FAERS Safety Report 24432949 (Version 1)
Quarter: 2024Q4

REPORT INFORMATION
  Report Type: Spontaneous
  Country: GB (occurrence: GB)
  Receive Date: 20241014
  Receipt Date: 20241014
  Transmission Date: 20250115
  Serious: Yes (Other)
  Sender: TEVA
  Company Number: None

PATIENT
  Sex: Male

DRUGS (5)
  1. ATORVASTATIN [Suspect]
     Active Substance: ATORVASTATIN
     Dosage: 40MG ONCE A DAY, TEVA UK ATORVASTATIN
     Route: 065
  2. PAROXETINE [Concomitant]
     Active Substance: PAROXETINE
     Indication: Type 2 diabetes mellitus
     Dosage: MA HOLDER ACTIVASE PHARMACEUTICALS LTD
  3. OMEPRAZOLE [Concomitant]
     Active Substance: OMEPRAZOLE
     Indication: Adverse drug reaction
     Dosage: GASTRO-RESISTANT MA HOLDER
  4. ASPIRIN [Concomitant]
     Active Substance: ASPIRIN
     Dosage: GASTRO - RESISTANT
  5. METFORMIN [Concomitant]
     Active Substance: METFORMIN HYDROCHLORIDE
     Dosage: MORNINGSIDE HEALTHCARE

REACTIONS (2)
  - Faeces discoloured [Unknown]
  - Flatulence [Not Recovered/Not Resolved]
